FAERS Safety Report 7559175-8 (Version None)
Quarter: 2011Q2

REPORT INFORMATION
  Report Type: 
  Country: None (occurrence: None)
  Receive Date: 20110621
  Receipt Date: 20110616
  Transmission Date: 20111010
  Serious: Yes (Other)
  Sender: FDA-Public Use
  Company Number: US-PFIZER INC-2011133748

PATIENT
  Sex: Male

DRUGS (1)
  1. RAPAMUNE [Suspect]
     Indication: RENAL DISORDER
     Dosage: 3 MG DAILY
     Dates: start: 20100603, end: 20110601

REACTIONS (3)
  - ASCITES [None]
  - ABDOMINAL PAIN UPPER [None]
  - DECREASED APPETITE [None]
